FAERS Safety Report 9882652 (Version 1)
Quarter: 2014Q1

REPORT INFORMATION
  Report Type: Spontaneous
  Country: US (occurrence: US)
  Receive Date: 20140207
  Receipt Date: 20140207
  Transmission Date: 20141002
  Serious: Yes (Other)
  Sender: FDA-Public Use
  Company Number: US-FRI-1000054032

PATIENT
  Sex: Female

DRUGS (1)
  1. NAMENDA XR [Suspect]

REACTIONS (1)
  - Pancreatitis [Unknown]
